FAERS Safety Report 7693360-X (Version None)
Quarter: 2011Q3

REPORT INFORMATION
  Report Type: 
  Country: None (occurrence: None)
  Receive Date: 20110819
  Receipt Date: 20110817
  Transmission Date: 20111222
  Serious: Yes (Death)
  Sender: FDA-Public Use
  Company Number: PE-PFIZER INC-2011168507

PATIENT
  Age: 94 Year
  Sex: Male

DRUGS (6)
  1. CANDESARTAN [Concomitant]
     Route: 048
  2. CELEBREX [Suspect]
     Dosage: 200 MG, 2X/DAY
     Route: 048
     Dates: start: 20030101, end: 20110607
  3. LASIX [Concomitant]
     Route: 048
  4. CALCIUM CARBONATE [Concomitant]
     Route: 048
  5. NORVASC [Concomitant]
     Indication: HYPERTENSION
     Dosage: UNK
     Route: 048
  6. VERAPAMIL [Concomitant]
     Route: 048

REACTIONS (1)
  - RENAL FAILURE [None]
